FAERS Safety Report 4370727-9 (Version None)
Quarter: 2004Q2

REPORT INFORMATION
  Report Type: 
  Country: None (occurrence: None)
  Receive Date: 20040602
  Receipt Date: 20040602
  Transmission Date: 20050107
  Serious: Yes (Hospitalization)
  Sender: FDA-Public Use
  Company Number: None

PATIENT
  Sex: Male

DRUGS (4)
  1. DIVALPROEX SODIUM EXTENDED RELEASE [Suspect]
     Dosage: 1250 MG 5 PM ORAL
     Route: 048
     Dates: start: 20040330, end: 20040423
  2. OLANZAPINE [Concomitant]
  3. HALOPERIDOL [Concomitant]
  4. SIMVASTATIN [Concomitant]

REACTIONS (1)
  - AMMONIA INCREASED [None]
